FAERS Safety Report 25206471 (Version 1)
Quarter: 2025Q2

REPORT INFORMATION
  Report Type: Spontaneous
  Country: US (occurrence: US)
  Receive Date: 20250417
  Receipt Date: 20250417
  Transmission Date: 20250717
  Serious: No
  Sender: ELI LILLY AND CO
  Company Number: US-ELI_LILLY_AND_COMPANY-US202504009363

PATIENT
  Age: 71 Year
  Sex: Male

DRUGS (1)
  1. TADALAFIL [Suspect]
     Active Substance: TADALAFIL
     Indication: Pulmonary arterial hypertension
     Dosage: 2 DOSAGE FORM (2 TABLETS), BID
     Route: 065

REACTIONS (2)
  - Off label use [Unknown]
  - Abdominal pain upper [Not Recovered/Not Resolved]
